FAERS Safety Report 6283741-3 (Version None)
Quarter: 2009Q3

REPORT INFORMATION
  Report Type: 
  Country: None (occurrence: None)
  Receive Date: 20090724
  Receipt Date: 20090721
  Transmission Date: 20100115
  Serious: Yes (Hospitalization)
  Sender: FDA-Public Use
  Company Number: NL-MERCK-0907NLD00021

PATIENT
  Age: 86 Year
  Sex: Male

DRUGS (9)
  1. COZAAR [Suspect]
     Indication: CARDIAC FAILURE
     Route: 048
     Dates: start: 20070101, end: 20090601
  2. COZAAR [Suspect]
     Route: 048
     Dates: start: 20070701
  3. VERAPAMIL [Concomitant]
     Route: 048
  4. ACENOCOUMAROL [Concomitant]
     Route: 065
  5. BETAHISTINE [Concomitant]
     Route: 048
  6. COLCHICINE [Concomitant]
     Route: 048
  7. DICLOFENAC [Suspect]
     Indication: PAIN
     Route: 048
     Dates: start: 20090401, end: 20090626
  8. BUMETANIDE [Suspect]
     Indication: CARDIAC FAILURE
     Route: 048
     Dates: start: 20070101, end: 20090601
  9. BUMETANIDE [Suspect]
     Route: 048
     Dates: start: 20070701

REACTIONS (2)
  - PEPTIC ULCER [None]
  - RENAL FAILURE [None]
